FAERS Safety Report 19137956 (Version 1)
Quarter: 2021Q2

REPORT INFORMATION
  Report Type: Spontaneous
  Country: CN (occurrence: CN)
  Receive Date: 20210414
  Receipt Date: 20210414
  Transmission Date: 20210717
  Serious: Yes (Other)
  Sender: FDA-Public Use
  Company Number: CN-JNJFOC-20210413851

PATIENT

DRUGS (1)
  1. PALIPERIDONE. [Suspect]
     Active Substance: PALIPERIDONE
     Indication: SCHIZOPHRENIA
     Dosage: NATIONAL MEDICINE PERMISSION NUMBER J20140068
     Route: 048

REACTIONS (6)
  - Somnolence [Unknown]
  - Arrhythmia [Unknown]
  - Tremor [Unknown]
  - Off label use [Unknown]
  - Product use issue [Unknown]
  - Dry mouth [Unknown]
